FAERS Safety Report 9366078 (Version 4)
Quarter: 2013Q3

REPORT INFORMATION
  Report Type: Spontaneous
  Country: US (occurrence: US)
  Receive Date: 20130625
  Receipt Date: 20130805
  Transmission Date: 20140515
  Serious: Yes (Other)
  Sender: FDA-Public Use
  Company Number: US-PFIZER INC-2013186388

PATIENT
  Age: 46 Year
  Sex: Female
  Weight: 76.19 kg

DRUGS (14)
  1. DILANTIN-125 [Suspect]
     Dosage: UNK
  2. ZYPREXA [Suspect]
     Dosage: UNK
  3. KEPPRA [Suspect]
     Indication: EPILEPSY
     Dosage: UNKNOWN DOSE DAILY
     Dates: start: 1999, end: 200811
  4. KEPPRA [Suspect]
     Indication: CRANIOCEREBRAL INJURY
  5. TEGRETOL-XR [Suspect]
     Indication: EPILEPSY
     Dosage: 600 MG, 2X/DAY
  6. TEGRETOL-XR [Suspect]
     Indication: CRANIOCEREBRAL INJURY
  7. DEPAKOTE [Suspect]
     Dosage: UNK
  8. NOVOLOG [Suspect]
     Indication: DIABETES MELLITUS
     Dosage: 1.25 MG, EVERY HOUR
  9. SYNTHROID [Concomitant]
     Indication: HYPOTHYROIDISM
     Dosage: 0.125 MG DAILY
  10. FOLIC ACID [Concomitant]
     Dosage: 1 MG DAILY
  11. LAMICTAL [Concomitant]
     Indication: EPILEPSY
     Dosage: ONE TABLET OF 150MG IN MORNING AND ONE AND HALF TABLET OF 150MG AT NIGHT, 2X/DAY
  12. ALTACE [Concomitant]
     Indication: BLOOD PRESSURE ABNORMAL
     Dosage: 10 MG, 2X/DAY
  13. PANTOPRAZOLE [Concomitant]
     Indication: GASTROOESOPHAGEAL REFLUX DISEASE
     Dosage: 40 MG DAILY
  14. CRESTOR [Concomitant]
     Indication: BLOOD CHOLESTEROL INCREASED
     Dosage: 20 MG, 1X/DAY

REACTIONS (20)
  - Multi-organ failure [Unknown]
  - Pancreatitis [Unknown]
  - Chest pain [Unknown]
  - Diabetes mellitus [Unknown]
  - Cerebral cyst [Unknown]
  - Weight decreased [Unknown]
  - Gingival disorder [Unknown]
  - Gingival hyperplasia [Unknown]
  - Nervous system disorder [Unknown]
  - Alopecia [Unknown]
  - Aggression [Unknown]
  - Speech disorder [Unknown]
  - Logorrhoea [Not Recovered/Not Resolved]
  - Tremor [Unknown]
  - Drug ineffective [Unknown]
  - Feeling abnormal [Unknown]
  - Gingivitis [Unknown]
  - Tooth disorder [Unknown]
  - Pain [Unknown]
  - Emotional disorder [Unknown]
